FAERS Safety Report 7926853-8 (Version None)
Quarter: 2011Q4

REPORT INFORMATION
  Report Type: 
  Country: None (occurrence: None)
  Receive Date: 20111118
  Receipt Date: 20111116
  Transmission Date: 20120403
  Serious: Yes (Death, Other)
  Sender: FDA-Public Use
  Company Number: FR-PFIZER INC-2011205550

PATIENT
  Age: 43 Year
  Sex: Male
  Weight: 80 kg

DRUGS (3)
  1. XANAX [Suspect]
     Dosage: 0.25 MG, 1X/DAY
     Route: 048
     Dates: start: 20100415
  2. ZOLOFT [Suspect]
     Dosage: 50 MG, 1X/DAY
     Dates: start: 20100418
  3. ZOLOFT [Suspect]
     Dosage: 25 MG, 1X/DAY
     Dates: start: 20100415

REACTIONS (2)
  - COMPLETED SUICIDE [None]
  - DISINHIBITION [None]
